FAERS Safety Report 8947244 (Version 2)
Quarter: 2012Q4

REPORT INFORMATION
  Report Type: 
  Country: TW (occurrence: TW)
  Receive Date: 20121205
  Receipt Date: 20121212
  Transmission Date: 20130627
  Serious: Yes (Life-Threatening, Hospitalization)
  Sender: FDA-Public Use
  Company Number: TW-PFIZER INC-2012302434

PATIENT
  Age: 14 Year
  Sex: Male

DRUGS (3)
  1. PHENYTOIN SODIUM [Suspect]
     Indication: SEIZURE
     Dosage: UNK
     Route: 042
  2. CARBAMAZEPINE [Suspect]
     Indication: SEIZURE
     Dosage: UNK
     Route: 042
  3. CLONAZEPAM [Suspect]
     Indication: SEIZURE
     Route: 042

REACTIONS (2)
  - Drug reaction with eosinophilia and systemic symptoms [Recovering/Resolving]
  - Myocarditis [Recovering/Resolving]
